FAERS Safety Report 8050976-9 (Version None)
Quarter: 2012Q1

REPORT INFORMATION
  Report Type: 
  Country: None (occurrence: None)
  Receive Date: 20120117
  Receipt Date: 20120110
  Transmission Date: 20120608
  Serious: Yes (Other)
  Sender: FDA-Public Use
  Company Number: PHHY2011JP099286

PATIENT
  Sex: Female

DRUGS (2)
  1. DEPAKENE [Suspect]
     Dosage: UNK UKN, UNK
     Route: 048
  2. ZOMETA [Suspect]
     Indication: BREAST CANCER
     Dosage: UNK UKN, UNK
     Route: 041

REACTIONS (6)
  - HYPOKALAEMIA [None]
  - AMINOACIDURIA [None]
  - FANCONI SYNDROME [None]
  - ACIDOSIS [None]
  - RENAL GLYCOSURIA [None]
  - HYPOPHOSPHATAEMIA [None]
